FAERS Safety Report 8170224-9 (Version None)
Quarter: 2012Q1

REPORT INFORMATION
  Report Type: 
  Country: None (occurrence: None)
  Receive Date: 20120228
  Receipt Date: 20120216
  Transmission Date: 20120608
  Serious: Yes (Hospitalization, Other)
  Sender: FDA-Public Use
  Company Number: US-BAYER-2011-034734

PATIENT
  Age: 43 Year
  Sex: Female
  Weight: 81.633 kg

DRUGS (15)
  1. YAZ [Suspect]
     Indication: PREMENSTRUAL SYNDROME
  2. CELEBREX [Concomitant]
     Dosage: UNK
     Dates: start: 20080101, end: 20100101
  3. POTASSIUM CHLORIDE [Concomitant]
     Dosage: UNK
     Dates: start: 20070101, end: 20100101
  4. KETOROLAC TROMETHAMINE [Concomitant]
     Dosage: UNK
     Dates: start: 20080101, end: 20100101
  5. YAZ [Suspect]
     Indication: CONTRACEPTION
  6. OXYCODONE HCL [Concomitant]
     Indication: PAIN
     Dosage: UNK
     Dates: start: 20080101, end: 20090101
  7. LIPITOR [Concomitant]
  8. IMITREX [Concomitant]
     Indication: MIGRAINE
     Dosage: UNK
     Dates: start: 20080101, end: 20090101
  9. NAPROXEN [Concomitant]
     Dosage: UNK
     Dates: start: 20080101, end: 20100101
  10. TRAZODONE HCL [Concomitant]
     Indication: DEPRESSION
     Dosage: UNK
     Dates: start: 20060101, end: 20070101
  11. LASIX [Concomitant]
     Indication: FLUID RETENTION
     Dosage: UNK
     Dates: start: 20080101, end: 20100101
  12. ZOLPIDEM [Concomitant]
     Indication: INSOMNIA
     Dosage: UNK
     Dates: start: 20070101, end: 20090101
  13. YAZ [Suspect]
     Indication: ACNE
     Dosage: UNK
     Dates: start: 20070901, end: 20090801
  14. TRAZODONE HCL [Concomitant]
     Dosage: UNK
     Dates: start: 20090101
  15. EFFEXOR [Concomitant]
     Indication: DEPRESSION
     Dosage: UNK
     Dates: start: 20080101, end: 20090101

REACTIONS (9)
  - ANHEDONIA [None]
  - GENERAL PHYSICAL HEALTH DETERIORATION [None]
  - GALLBLADDER INJURY [None]
  - INJURY [None]
  - PAIN [None]
  - PANCREATITIS [None]
  - CHOLECYSTITIS CHRONIC [None]
  - EMOTIONAL DISTRESS [None]
  - ANXIETY [None]
